FAERS Safety Report 12972945 (Version 4)
Quarter: 2017Q4

REPORT INFORMATION
  Report Type: Spontaneous
  Country: US (occurrence: US)
  Receive Date: 20161124
  Receipt Date: 20171127
  Transmission Date: 20180320
  Serious: Yes (Hospitalization, Other)
  Sender: FDA-Public Use
  Company Number: US-PFIZER INC-2015148076

PATIENT
  Age: 70 Year
  Sex: Male
  Weight: 114 kg

DRUGS (24)
  1. ESTER C + BIOFLAVONOIDS [Concomitant]
     Dosage: UNK (ESTER-C 1000 MG/BIOFLAVONOIDS 200 MG)
  2. FISH OIL [Concomitant]
     Active Substance: FISH OIL
     Dosage: 1000 MG, DAILY
     Route: 048
  3. COREG [Concomitant]
     Active Substance: CARVEDILOL
     Dosage: 80 MG, DAILY
     Route: 048
  4. LANTUS [Concomitant]
     Active Substance: INSULIN GLARGINE
     Dosage: 22 IU, 2X/DAY
  5. TRULICITY [Concomitant]
     Active Substance: DULAGLUTIDE
     Dosage: UNK UNK, WEEKLY (0.75 MG/0.5ML )
     Route: 058
  6. SUTENT [Suspect]
     Active Substance: SUNITINIB MALATE
     Dosage: 50 MG, CYCLIC (50 MG QD D1-D28 Q 42D X6)
     Route: 048
     Dates: start: 20130604
  7. COQ10 [Concomitant]
     Active Substance: UBIDECARENONE
     Dosage: 100 MG, DAILY
     Route: 048
  8. CLONIDINE. [Concomitant]
     Active Substance: CLONIDINE
     Dosage: 0.2 MG, UNK
  9. VICTOZA [Concomitant]
     Active Substance: LIRAGLUTIDE
     Dosage: 18 MG, UNK
  10. SUTENT [Suspect]
     Active Substance: SUNITINIB MALATE
     Indication: METASTATIC RENAL CELL CARCINOMA
     Dosage: 25 MG, CYCLIC (28 DAYS ON/14 DAYS OFF)
     Route: 048
     Dates: start: 2012
  11. CIALIS [Concomitant]
     Active Substance: TADALAFIL
     Dosage: 2.5 MG, DAILY
     Route: 048
  12. RHINOCORT AQUA [Concomitant]
     Active Substance: BUDESONIDE
     Dosage: 32 UG, UNK
     Route: 045
  13. ASPIRIN. [Concomitant]
     Active Substance: ASPIRIN
     Dosage: 325 MG, DAILY
  14. SUTENT [Suspect]
     Active Substance: SUNITINIB MALATE
     Dosage: 50 MG, DAILY
     Route: 048
     Dates: start: 20160415
  15. SUTENT [Suspect]
     Active Substance: SUNITINIB MALATE
     Dosage: 25 MG, DAILY (FOR 4 WEEKS ON AND 14 DAYS OFF)
     Route: 048
     Dates: start: 20160506
  16. LANTUS [Concomitant]
     Active Substance: INSULIN GLARGINE
     Dosage: UNK IU/ML, 2X/DAY
     Route: 058
  17. CLONIDINE. [Concomitant]
     Active Substance: CLONIDINE
     Dosage: 0.2 MG, 2X/DAY
     Route: 048
  18. VICTOZA [Concomitant]
     Active Substance: LIRAGLUTIDE
     Dosage: 1.8 ML, 1X/DAY
  19. BAYER ASPIRIN [Concomitant]
     Active Substance: ASPIRIN
     Dosage: 325 MG, DAILY
     Route: 048
  20. SUTENT [Suspect]
     Active Substance: SUNITINIB MALATE
     Dosage: 25 MG, CYCLIC (Q 28 DAYS)
     Dates: start: 201304
  21. SIMVASTATIN. [Concomitant]
     Active Substance: SIMVASTATIN
     Dosage: 20 MG, DAILY
     Route: 048
  22. TRADJENTA [Concomitant]
     Active Substance: LINAGLIPTIN
     Dosage: UNK
  23. CARVEDILOL. [Concomitant]
     Active Substance: CARVEDILOL
     Dosage: 25 MG, 2X/DAY
     Route: 048
  24. LEVOTHYROXINE. [Concomitant]
     Active Substance: LEVOTHYROXINE
     Dosage: 50 UG, 1X/DAY
     Route: 048

REACTIONS (24)
  - Pancytopenia [Recovered/Resolved]
  - Leukopenia [Not Recovered/Not Resolved]
  - Hypoacusis [Not Recovered/Not Resolved]
  - Lip ulceration [Recovered/Resolved]
  - Blood creatinine increased [Not Recovered/Not Resolved]
  - Lung disorder [Not Recovered/Not Resolved]
  - Tinnitus [Unknown]
  - Fatigue [Not Recovered/Not Resolved]
  - Chest pain [Not Recovered/Not Resolved]
  - Hepatic enzyme abnormal [Unknown]
  - White blood cell count decreased [Unknown]
  - Optic ischaemic neuropathy [Unknown]
  - Weight decreased [Unknown]
  - Pain in extremity [Unknown]
  - Nasopharyngitis [Not Recovered/Not Resolved]
  - Mouth ulceration [Recovered/Resolved]
  - Thrombocytopenia [Not Recovered/Not Resolved]
  - Oral pain [Recovered/Resolved]
  - Weight increased [Unknown]
  - Oedema peripheral [Unknown]
  - Axillary mass [Unknown]
  - Asthenia [Not Recovered/Not Resolved]
  - Palmar-plantar erythrodysaesthesia syndrome [Recovered/Resolved]
  - Malaise [Recovering/Resolving]

NARRATIVE: CASE EVENT DATE: 201304
